FAERS Safety Report 4438586-3 (Version None)
Quarter: 2004Q3

REPORT INFORMATION
  Report Type: 
  Country: None (occurrence: None)
  Receive Date: 20040728
  Receipt Date: 20040302
  Transmission Date: 20050211
  Serious: No
  Sender: FDA-Public Use
  Company Number: USA040360806

PATIENT
  Age: 38 Year
  Sex: Male

DRUGS (4)
  1. STRATTERA [Suspect]
     Dosage: 120 MG DAY
     Dates: start: 20020901, end: 20040226
  2. NORTRIPTYLINE HCL [Concomitant]
  3. NORVASC [Concomitant]
  4. ALTACE [Concomitant]

REACTIONS (4)
  - ERECTILE DYSFUNCTION [None]
  - LOSS OF LIBIDO [None]
  - PRESCRIBED OVERDOSE [None]
  - URINARY HESITATION [None]
